FAERS Safety Report 25427937 (Version 1)
Quarter: 2025Q2

REPORT INFORMATION
  Report Type: Report from Study
  Country: RO (occurrence: RO)
  Receive Date: 20250612
  Receipt Date: 20250612
  Transmission Date: 20250717
  Serious: Yes (Death, Hospitalization, Other)
  Sender: ROCHE
  Company Number: RO-ROCHE-10000306355

PATIENT
  Age: 81 Year
  Sex: Female
  Weight: 60 kg

DRUGS (1)
  1. PHESGO [Suspect]
     Active Substance: HYALURONIDASE-ZZXF\PERTUZUMAB\TRASTUZUMAB
     Indication: Breast cancer
     Route: 065
     Dates: end: 202403

REACTIONS (6)
  - Malaise [Unknown]
  - Circulatory collapse [Unknown]
  - Cough [Unknown]
  - Pneumonia [Unknown]
  - Cardiac disorder [Unknown]
  - Death [Fatal]
